FAERS Safety Report 17163753 (Version 1)
Quarter: 2019Q4

REPORT INFORMATION
  Report Type: Spontaneous
  Country: US (occurrence: US)
  Receive Date: 20191217
  Receipt Date: 20191217
  Transmission Date: 20200122
  Serious: Yes (Hospitalization, Other)
  Sender: FDA-Public Use
  Company Number: US-MACLEODS PHARMACEUTICALS US LTD-MAC2014001500

PATIENT

DRUGS (2)
  1. MONTELUKAST [Suspect]
     Active Substance: MONTELUKAST SODIUM
     Indication: ASTHMA
     Dosage: UNK
     Route: 065
  2. ALBUTEROL. [Concomitant]
     Active Substance: ALBUTEROL
     Indication: COUGH
     Dosage: UNK
     Route: 065

REACTIONS (12)
  - Eosinophilic granulomatosis with polyangiitis [Recovered/Resolved]
  - Cardiomegaly [Recovered/Resolved]
  - Myalgia [Recovered/Resolved]
  - Haemoptysis [Recovered/Resolved]
  - Chest pain [Recovered/Resolved]
  - Nasal polyps [Recovered/Resolved]
  - Drug ineffective [Unknown]
  - Pericardial effusion [Recovered/Resolved]
  - Eosinophilia [Recovered/Resolved]
  - Pyrexia [Recovered/Resolved]
  - Rash vesicular [Recovered/Resolved]
  - Dyspnoea [Recovered/Resolved]
